FAERS Safety Report 13085701 (Version 1)
Quarter: 2017Q1

REPORT INFORMATION
  Report Type: Spontaneous
  Country: US (occurrence: US)
  Receive Date: 20170104
  Receipt Date: 20170104
  Transmission Date: 20170428
  Serious: Yes (Disabling)
  Sender: FDA-Public Use
  Company Number: None

PATIENT
  Age: 59 Year
  Sex: Male
  Weight: 65.2 kg

DRUGS (1)
  1. LISINOPRIL. [Suspect]
     Active Substance: LISINOPRIL
     Indication: HYPERTENSION
     Dosage: QUANTITY:1 TABLET(S); TWICE A DAY; ORAL?
     Route: 048

REACTIONS (9)
  - Dizziness [None]
  - Cough [None]
  - Dysgeusia [None]
  - Asthenia [None]
  - Blood creatinine increased [None]
  - Blood urea increased [None]
  - Chronic kidney disease [None]
  - Headache [None]
  - Somnolence [None]
